FAERS Safety Report 15549534 (Version 2)
Quarter: 2018Q4

REPORT INFORMATION
  Report Type: Report from Study
  Country: CA (occurrence: CA)
  Receive Date: 20181025
  Receipt Date: 20181112
  Transmission Date: 20190205
  Serious: Yes (Death, Hospitalization, Other)
  Sender: FDA-Public Use
  Company Number: CA-BRISTOL-MYERS SQUIBB COMPANY-BMS-2017-002441

PATIENT
  Age: 79 Year
  Sex: Female

DRUGS (8)
  1. TYLENOL [Concomitant]
     Active Substance: ACETAMINOPHEN
     Indication: PRODUCT USED FOR UNKNOWN INDICATION
     Dosage: UNK
     Route: 065
  2. PREDNISONE. [Concomitant]
     Active Substance: PREDNISONE
     Indication: PRODUCT USED FOR UNKNOWN INDICATION
     Dosage: UNK
     Route: 065
  3. COZAAR [Concomitant]
     Active Substance: LOSARTAN POTASSIUM
     Indication: PRODUCT USED FOR UNKNOWN INDICATION
     Dosage: UNK
     Route: 065
  4. LACRI-LUBE [Concomitant]
     Indication: PRODUCT USED FOR UNKNOWN INDICATION
     Dosage: UNK
     Route: 065
  5. ARTHROTEC [Concomitant]
     Active Substance: DICLOFENAC SODIUM\MISOPROSTOL
     Indication: PRODUCT USED FOR UNKNOWN INDICATION
     Dosage: UNK
     Route: 065
  6. ABATACEPT [Suspect]
     Active Substance: ABATACEPT
     Indication: RHEUMATOID ARTHRITIS
     Dosage: 250 MG, Q4WK
     Route: 042
     Dates: start: 20090513, end: 20180828
  7. CALCIUM AND VITAMIN D                /01483701/ [Concomitant]
     Indication: PRODUCT USED FOR UNKNOWN INDICATION
     Dosage: UNK
     Route: 065
  8. FERROUS GLUCONATE [Concomitant]
     Active Substance: FERROUS GLUCONATE
     Indication: PRODUCT USED FOR UNKNOWN INDICATION
     Dosage: UNK
     Route: 065

REACTIONS (24)
  - Eating disorder [Unknown]
  - Urinary tract infection [Not Recovered/Not Resolved]
  - Gastroenteritis viral [Unknown]
  - Rash [Recovering/Resolving]
  - Speech disorder [Unknown]
  - Abnormal faeces [Unknown]
  - Transient ischaemic attack [Unknown]
  - Escherichia urinary tract infection [Unknown]
  - Influenza [Recovering/Resolving]
  - Oral candidiasis [Unknown]
  - Death [Fatal]
  - Dysuria [Unknown]
  - Fall [Unknown]
  - Oral herpes [Recovering/Resolving]
  - Cough [Unknown]
  - Infection [Unknown]
  - Contusion [Unknown]
  - Respiratory tract congestion [Unknown]
  - Influenza A virus test positive [Unknown]
  - Cerebrovascular accident [Unknown]
  - Nasopharyngitis [Unknown]
  - Rheumatoid arthritis [Recovering/Resolving]
  - Productive cough [Unknown]
  - Nasal congestion [Unknown]

NARRATIVE: CASE EVENT DATE: 201612
